FAERS Safety Report 19538627 (Version 1)
Quarter: 2021Q3

REPORT INFORMATION
  Report Type: Spontaneous
  Country: US (occurrence: US)
  Receive Date: 20210714
  Receipt Date: 20210714
  Transmission Date: 20211014
  Serious: No
  Sender: FDA-Public Use
  Company Number: US-AJANTA PHARMA USA INC.-2113803

PATIENT
  Age: 61 Year
  Sex: Female
  Weight: 63.64 kg

DRUGS (1)
  1. CHOLESTYRAMINE (ANDA 211119) [Suspect]
     Active Substance: CHOLESTYRAMINE
     Indication: DIARRHOEA
     Route: 048
     Dates: start: 20210520, end: 20210524

REACTIONS (4)
  - Product use complaint [Recovered/Resolved]
  - Retching [Recovered/Resolved]
  - Product substitution issue [Recovered/Resolved]
  - Product solubility abnormal [Recovered/Resolved]

NARRATIVE: CASE EVENT DATE: 20210520
